FAERS Safety Report 9197610 (Version 1)
Quarter: 2013Q1

REPORT INFORMATION
  Report Type: Spontaneous
  Country: US (occurrence: None)
  Receive Date: 20120709
  Receipt Date: 20120709
  Transmission Date: 20140127
  Serious: Yes (Other)
  Sender: FDA-Public Use
  Company Number: PHHY2011US48163

PATIENT
  Age: 57 Year
  Sex: Female

DRUGS (1)
  1. GLEEVEC (IMATINIB) [Suspect]
     Indication: CHRONIC MYELOID LEUKAEMIA
     Dosage: (100MG X 4 TABLETS)
     Route: 048
     Dates: start: 20070808

REACTIONS (5)
  - Anaemia [None]
  - Chronic fatigue syndrome [None]
  - Oedema peripheral [None]
  - Bone pain [None]
  - Pain in extremity [None]
